FAERS Safety Report 6262584-0 (Version None)
Quarter: 2009Q3

REPORT INFORMATION
  Report Type: 
  Country: None (occurrence: None)
  Receive Date: 20090709
  Receipt Date: 20090706
  Transmission Date: 20100115
  Serious: Yes (Hospitalization)
  Sender: FDA-Public Use
  Company Number: US-ELI_LILLY_AND_COMPANY-US200907000891

PATIENT
  Sex: Male

DRUGS (3)
  1. HUMULIN N [Suspect]
  2. HUMULIN R [Suspect]
     Indication: DIABETES MELLITUS
  3. NOVOLIN N [Concomitant]

REACTIONS (5)
  - BLOOD GLUCOSE INCREASED [None]
  - CEREBROVASCULAR ACCIDENT [None]
  - DRUG DISPENSING ERROR [None]
  - HYPERTENSION [None]
  - MENTAL IMPAIRMENT [None]
